FAERS Safety Report 18769788 (Version 1)
Quarter: 2021Q1

REPORT INFORMATION
  Report Type: Spontaneous
  Country: IE (occurrence: IE)
  Receive Date: 20210121
  Receipt Date: 20210121
  Transmission Date: 20210419
  Serious: Yes (Other)
  Sender: FDA-Public Use
  Company Number: IE-VERTEX PHARMACEUTICALS-2021-000746

PATIENT
  Age: 54 Year
  Sex: Male

DRUGS (12)
  1. MONTELUKAST [Concomitant]
     Active Substance: MONTELUKAST SODIUM
     Dosage: NOCTE(NIGHT)
     Route: 048
  2. SINUFRIN NEILMED [Concomitant]
     Active Substance: OXYMETAZOLINE HYDROCHLORIDE
  3. KAFTRIO [Suspect]
     Active Substance: ELEXACAFTOR\IVACAFTOR\TEZACAFTOR
     Indication: CYSTIC FIBROSIS
     Dosage: TWO TABLETS(75 MG IVA/ 50 MG TEZA/ 100 MG ELEXA) IN MORNING
     Route: 048
     Dates: start: 20201029
  4. SERETIDE [Concomitant]
     Active Substance: FLUTICASONE PROPIONATE\SALMETEROL XINAFOATE
     Dosage: 250 MICROGRAM, BID
  5. PULMOZYME [Concomitant]
     Active Substance: DORNASE ALFA
     Dosage: 2.5 MG, QD
  6. LANSOPRAZOLE. [Concomitant]
     Active Substance: LANSOPRAZOLE
     Dosage: 30 MG, QD
  7. RINATEC [Concomitant]
     Dosage: UNK, BID
     Route: 045
  8. KALYDECO [Suspect]
     Active Substance: IVACAFTOR
     Indication: CYSTIC FIBROSIS
     Dosage: 1 TAB (150 MG IVACAFTOR) IN NIGHT
     Route: 048
     Dates: start: 20201029
  9. SALBUTAMOL [Concomitant]
     Active Substance: ALBUTEROL
     Dosage: 100 MICROGRAM, PRN
     Route: 055
  10. DESUNIN [Concomitant]
     Active Substance: CHOLECALCIFEROL
     Dosage: 800IU, QD
     Route: 048
  11. VENTOLIN [Concomitant]
     Active Substance: ALBUTEROL SULFATE
     Dosage: 2.5 MG, BID
  12. AVAMYS [Concomitant]
     Active Substance: FLUTICASONE FUROATE

REACTIONS (6)
  - Paraesthesia [Not Recovered/Not Resolved]
  - Pain in extremity [Not Recovered/Not Resolved]
  - Pain of skin [Not Recovered/Not Resolved]
  - Skin burning sensation [Not Recovered/Not Resolved]
  - Groin pain [Recovering/Resolving]
  - Skin discomfort [Not Recovered/Not Resolved]

NARRATIVE: CASE EVENT DATE: 20201214
